FAERS Safety Report 5613950-5 (Version None)
Quarter: 2008Q1

REPORT INFORMATION
  Report Type: 
  Country: None (occurrence: None)
  Receive Date: 20080205
  Receipt Date: 20080124
  Transmission Date: 20080703
  Serious: Yes (Other)
  Sender: FDA-Public Use
  Company Number: US-ROCHE-533408

PATIENT
  Age: 80 Year
  Sex: Male
  Weight: 63.5 kg

DRUGS (2)
  1. BONIVA [Suspect]
     Indication: OSTEOPOROSIS
     Route: 048
     Dates: start: 20071122
  2. COZAAR [Concomitant]
     Dosage: DRUG: COZAR

REACTIONS (9)
  - DYSKINESIA [None]
  - JAW DISORDER [None]
  - PAIN IN EXTREMITY [None]
  - PAIN IN JAW [None]
  - SENSITIVITY OF TEETH [None]
  - STOMACH DISCOMFORT [None]
  - TEMPOROMANDIBULAR JOINT SYNDROME [None]
  - TENDON PAIN [None]
  - THROAT IRRITATION [None]
